FAERS Safety Report 21534528 (Version 1)
Quarter: 2022Q4

REPORT INFORMATION
  Report Type: Spontaneous
  Country: US (occurrence: US)
  Receive Date: 20221101
  Receipt Date: 20221101
  Transmission Date: 20230112
  Serious: Yes (Hospitalization)
  Sender: FDA-Public Use
  Company Number: US-AMNEAL PHARMACEUTICALS-2022-AMRX-03107

PATIENT
  Age: 65 Year
  Sex: Female

DRUGS (2)
  1. METHOTREXATE [Suspect]
     Active Substance: METHOTREXATE
     Indication: Product used for unknown indication
     Dosage: 25 MILLIGRAM, 1 /WEEK
     Route: 065
  2. METHOTREXATE [Suspect]
     Active Substance: METHOTREXATE
     Dosage: 5 MILLIGRAM, QD
     Route: 065

REACTIONS (19)
  - Toxicity to various agents [Recovering/Resolving]
  - Dysphagia [Recovering/Resolving]
  - Dehydration [Recovering/Resolving]
  - Incorrect dose administered [Unknown]
  - Tachycardia [Recovering/Resolving]
  - Hypotension [Recovering/Resolving]
  - Rash [Recovering/Resolving]
  - Decreased appetite [Recovering/Resolving]
  - Nausea [Recovering/Resolving]
  - Vomiting [Recovering/Resolving]
  - Diarrhoea [Recovering/Resolving]
  - Aspartate aminotransferase abnormal [Recovering/Resolving]
  - Alanine aminotransferase abnormal [Recovering/Resolving]
  - Blood bilirubin abnormal [Recovering/Resolving]
  - Haemoglobin abnormal [Recovering/Resolving]
  - Neutrophil count abnormal [Recovering/Resolving]
  - Lymphocyte count abnormal [Recovering/Resolving]
  - Platelet count abnormal [Recovering/Resolving]
  - Pyrexia [Recovering/Resolving]
